FAERS Safety Report 25303936 (Version 1)
Quarter: 2025Q2

REPORT INFORMATION
  Report Type: Spontaneous
  Country: FI (occurrence: FI)
  Receive Date: 20250513
  Receipt Date: 20250513
  Transmission Date: 20250716
  Serious: Yes (Disabling)
  Sender: NOVO NORDISK
  Company Number: None

PATIENT
  Age: 58 Year
  Sex: Male

DRUGS (2)
  1. OZEMPIC [Suspect]
     Active Substance: SEMAGLUTIDE
     Indication: Overweight
     Dosage: 1 MG, QW
     Dates: start: 20241103, end: 20250420
  2. TELMISARTAN [Concomitant]
     Active Substance: TELMISARTAN
     Indication: Blood pressure abnormal
     Dosage: 40 MG A DAY
     Route: 048
     Dates: start: 2023

REACTIONS (8)
  - Impaired work ability [Recovered/Resolved]
  - Intra-abdominal fluid collection [Recovered/Resolved]
  - Abdominal symptom [Recovered/Resolved]
  - Asthenia [Recovered/Resolved]
  - Diarrhoea [Recovered/Resolved]
  - Eructation [Recovered/Resolved]
  - Flatulence [Recovered/Resolved]
  - Off label use [Recovered/Resolved]

NARRATIVE: CASE EVENT DATE: 20241103
